FAERS Safety Report 22002354 (Version 2)
Quarter: 2023Q1

REPORT INFORMATION
  Report Type: Report from Study
  Country: HN (occurrence: None)
  Receive Date: 20230217
  Receipt Date: 20230303
  Transmission Date: 20230418
  Serious: Yes (Hospitalization)
  Sender: FDA-Public Use
  Company Number: HN-Merck Healthcare KGaA-9384136

PATIENT
  Age: 54 Year
  Sex: Female

DRUGS (1)
  1. REBIF [Suspect]
     Active Substance: INTERFERON BETA-1A
     Indication: Multiple sclerosis
     Route: 058
     Dates: start: 20210218

REACTIONS (2)
  - Multiple sclerosis relapse [Recovered/Resolved]
  - Product availability issue [Recovered/Resolved]

NARRATIVE: CASE EVENT DATE: 20230214
